FAERS Safety Report 12318857 (Version 3)
Quarter: 2017Q3

REPORT INFORMATION
  Report Type: Report from Study
  Country: None (occurrence: US)
  Receive Date: 20160429
  Receipt Date: 20170903
  Transmission Date: 20171127
  Serious: Yes (Other)
  Sender: FDA-Public Use
  Company Number: US-ABBVIE-16K-163-1609874-00

PATIENT
  Sex: Female

DRUGS (2)
  1. HUMIRA [Suspect]
     Active Substance: ADALIMUMAB
     Route: 058
  2. HUMIRA [Suspect]
     Active Substance: ADALIMUMAB
     Indication: RHEUMATOID ARTHRITIS
     Route: 058
     Dates: start: 2014

REACTIONS (7)
  - Joint dislocation [Not Recovered/Not Resolved]
  - Blood test abnormal [Recovered/Resolved]
  - Somnolence [Unknown]
  - Diabetes mellitus [Unknown]
  - Osteoarthritis [Unknown]
  - Fatigue [Unknown]
  - Insomnia [Unknown]
